FAERS Safety Report 12195720 (Version 1)
Quarter: 2016Q1

REPORT INFORMATION
  Report Type: Spontaneous
  Country: US (occurrence: US)
  Receive Date: 20160321
  Receipt Date: 20160321
  Transmission Date: 20160526
  Serious: No
  Sender: FDA-Public Use
  Company Number: US-MYLANLABS-2015M1006260

PATIENT
  Sex: Male
  Weight: 72.56 kg

DRUGS (2)
  1. CAPTOPRIL TABLETS, USP [Suspect]
     Active Substance: CAPTOPRIL
     Indication: CARDIAC FAILURE CONGESTIVE
     Dosage: 50 MG, TID
     Route: 048
     Dates: start: 2014, end: 201411
  2. DIURETIC                           /00022001/ [Concomitant]
     Active Substance: HYDROCHLOROTHIAZIDE
     Dosage: UNK

REACTIONS (3)
  - Skin discolouration [Recovered/Resolved]
  - Weight decreased [Recovered/Resolved]
  - Asthenia [Recovered/Resolved]

NARRATIVE: CASE EVENT DATE: 2014
